FAERS Safety Report 8171818-7 (Version None)
Quarter: 2012Q1

REPORT INFORMATION
  Report Type: 
  Country: None (occurrence: None)
  Receive Date: 20120228
  Receipt Date: 20120223
  Transmission Date: 20120608
  Serious: Yes (Other)
  Sender: FDA-Public Use
  Company Number: JP-GLAXOSMITHKLINE-B0784018A

PATIENT
  Age: 63 Year
  Sex: Male

DRUGS (1)
  1. ZOVIRAX [Suspect]
     Indication: KERATITIS HERPETIC
     Dosage: 1IUAX PER DAY
     Route: 031
     Dates: start: 20120222

REACTIONS (2)
  - INTRAOCULAR PRESSURE INCREASED [None]
  - HEADACHE [None]
